FAERS Safety Report 6517027-6 (Version None)
Quarter: 2009Q4

REPORT INFORMATION
  Report Type: 
  Country: None (occurrence: None)
  Receive Date: 20091223
  Receipt Date: 20091217
  Transmission Date: 20100525
  Serious: Yes (Death, Other)
  Sender: FDA-Public Use
  Company Number: GXKR2009GB13619

PATIENT
  Age: 9 Year
  Sex: Male

DRUGS (3)
  1. AZATHIOPRINE [Suspect]
     Indication: IMMUNOSUPPRESSION
     Route: 065
  2. CYCLOSPORINE [Suspect]
     Indication: IMMUNOSUPPRESSION
     Route: 065
  3. CYCLOPHOSPHAMIDE [Suspect]
     Route: 065

REACTIONS (7)
  - ABDOMINAL PAIN [None]
  - ANGIOPATHY [None]
  - ARTHRALGIA [None]
  - BURKITT'S LEUKAEMIA [None]
  - CARDIAC FAILURE [None]
  - CONSTIPATION [None]
  - NEUROTOXICITY [None]
